FAERS Safety Report 9927294 (Version 2)
Quarter: 2014Q1

REPORT INFORMATION
  Report Type: Spontaneous
  Country: US (occurrence: US)
  Receive Date: 20140226
  Receipt Date: 20140226
  Transmission Date: 20141002
  Serious: Yes (Other)
  Sender: FDA-Public Use
  Company Number: US-GE HEALTHCARE MEDICAL DIAGNOSTICS-OSCN-PR-1103S-0096

PATIENT
  Sex: Male

DRUGS (16)
  1. OMNISCAN [Suspect]
     Indication: HEADACHE
     Route: 042
     Dates: start: 20050124, end: 20050124
  2. OMNISCAN [Suspect]
     Indication: CENTRAL NERVOUS SYSTEM LESION
     Route: 042
     Dates: start: 20050128, end: 20050128
  3. OMNISCAN [Suspect]
     Indication: LYMPHOMA
     Route: 042
     Dates: start: 20050228, end: 20050228
  4. OMNISCAN [Suspect]
     Route: 042
     Dates: start: 20050328, end: 20050328
  5. OMNISCAN [Suspect]
     Route: 042
     Dates: start: 20050425, end: 20050425
  6. OMNISCAN [Suspect]
     Route: 042
     Dates: start: 20060422, end: 20060422
  7. MAGNEVIST [Suspect]
     Indication: LYMPHOMA
     Route: 042
     Dates: start: 20041112, end: 20041112
  8. MAGNEVIST [Suspect]
     Route: 042
     Dates: start: 20050617, end: 20050617
  9. MAGNEVIST [Suspect]
     Route: 042
     Dates: start: 20050808, end: 20050808
  10. MAGNEVIST [Suspect]
     Route: 042
     Dates: start: 20051031, end: 20051031
  11. MAGNEVIST [Suspect]
     Route: 042
     Dates: start: 20060130, end: 20060130
  12. MAGNEVIST [Suspect]
     Route: 042
     Dates: start: 20060724, end: 20060724
  13. MAGNEVIST [Suspect]
     Route: 042
     Dates: start: 20061113, end: 20061113
  14. PROHANCE [Suspect]
     Indication: LYMPHOMA
     Route: 042
     Dates: start: 20070212, end: 20070212
  15. PROHANCE [Suspect]
     Route: 042
     Dates: start: 20070604, end: 20070604
  16. PROHANCE [Suspect]
     Route: 042
     Dates: start: 20070910, end: 20070910

REACTIONS (1)
  - Nephrogenic systemic fibrosis [Not Recovered/Not Resolved]
